FAERS Safety Report 5679046-1 (Version None)
Quarter: 2008Q1

REPORT INFORMATION
  Report Type: 
  Country: None (occurrence: None)
  Receive Date: 20080321
  Receipt Date: 20080310
  Transmission Date: 20080703
  Serious: Yes (Hospitalization)
  Sender: FDA-Public Use
  Company Number: 2008BI006945

PATIENT
  Age: 69 Year
  Sex: Female

DRUGS (1)
  1. AVONEX [Suspect]
     Indication: MULTIPLE SCLEROSIS
     Dosage: 30 UG QW IM
     Route: 030
     Dates: start: 20060106

REACTIONS (5)
  - CHEST PAIN [None]
  - DYSPNOEA [None]
  - EAR DISCOMFORT [None]
  - NERVOUSNESS [None]
  - THROAT TIGHTNESS [None]
